FAERS Safety Report 6913971-6 (Version None)
Quarter: 2010Q3

REPORT INFORMATION
  Report Type: 
  Country: None (occurrence: None)
  Receive Date: 20100809
  Receipt Date: 20100726
  Transmission Date: 20110219
  Serious: Yes (Hospitalization, Other)
  Sender: FDA-Public Use
  Company Number: PHFR2010IE01406

PATIENT
  Sex: Male

DRUGS (2)
  1. CLOZARIL [Suspect]
     Indication: SCHIZOPHRENIA
     Dosage: 350 MG, QD
     Route: 048
     Dates: start: 20020121
  2. CLOZARIL [Suspect]
     Dosage: OVERDOSE (UNSPECIFIED)
     Route: 048

REACTIONS (3)
  - DEPRESSION [None]
  - DRUG DOSE OMISSION [None]
  - OVERDOSE [None]
